FAERS Safety Report 17785656 (Version 1)
Quarter: 2020Q2

REPORT INFORMATION
  Report Type: Spontaneous
  Country: PL (occurrence: PL)
  Receive Date: 20200514
  Receipt Date: 20200514
  Transmission Date: 20200714
  Serious: Yes (Hospitalization)
  Sender: FDA-Public Use
  Company Number: PL-AMNEAL PHARMACEUTICALS-2020-AMRX-01323

PATIENT
  Age: 51 Year
  Sex: Female

DRUGS (8)
  1. QUETIAPINE. [Suspect]
     Active Substance: QUETIAPINE
     Dosage: 400 MILLIGRAM, QD, INCREASED DOSE
     Route: 065
  2. LAMOTRIGINE ODT [Suspect]
     Active Substance: LAMOTRIGINE
     Indication: BIPOLAR DISORDER
     Dosage: 25 MILLIGRAM, QD, FOR 2 WEEKS
     Route: 065
  3. LAMOTRIGINE ODT [Suspect]
     Active Substance: LAMOTRIGINE
     Dosage: 50 MILLIGRAM, QD, FOR A WEEK
     Route: 065
  4. QUETIAPINE. [Suspect]
     Active Substance: QUETIAPINE
     Indication: BIPOLAR DISORDER
     Dosage: 50 MILLIGRAM, QD
     Route: 065
  5. ARIPIPRAZOLE. [Suspect]
     Active Substance: ARIPIPRAZOLE
     Dosage: 30 MILLIGRAM, QD
     Route: 065
  6. LAMOTRIGINE ODT [Suspect]
     Active Substance: LAMOTRIGINE
     Dosage: FROM A DOSE OF 25 MG/D EACH 2 WEEKS TO 225 MG/D) WERE VERY SLOWLY INITIATED
     Route: 065
  7. ARIPIPRAZOLE. [Suspect]
     Active Substance: ARIPIPRAZOLE
     Indication: BIPOLAR DISORDER
     Dosage: 7.5 MILLIGRAM, QD
     Route: 065
  8. LAMOTRIGINE ODT [Suspect]
     Active Substance: LAMOTRIGINE
     Dosage: 200 MILLIGRAM, QD
     Route: 065

REACTIONS (2)
  - Therapeutic product effect incomplete [Recovering/Resolving]
  - Neuroleptic malignant syndrome [Recovered/Resolved]
